FAERS Safety Report 23756724 (Version 2)
Quarter: 2024Q2

REPORT INFORMATION
  Report Type: Spontaneous
  Country: US (occurrence: US)
  Receive Date: 20240418
  Receipt Date: 20240429
  Transmission Date: 20240716
  Serious: Yes (Other)
  Sender: FDA-Public Use
  Company Number: US-BAYER-2024A053483

PATIENT
  Age: 35 Year
  Sex: Female

DRUGS (1)
  1. MIRENA [Suspect]
     Active Substance: LEVONORGESTREL
     Dosage: 20?G/DAY
     Route: 015
     Dates: start: 20230409, end: 20230409

REACTIONS (3)
  - Uterine perforation [Recovered/Resolved]
  - Device difficult to use [None]
  - Complication of device insertion [None]

NARRATIVE: CASE EVENT DATE: 20230409
